FAERS Safety Report 24779144 (Version 3)
Quarter: 2024Q4

REPORT INFORMATION
  Report Type: Spontaneous
  Country: MX (occurrence: MX)
  Receive Date: 20241226
  Receipt Date: 20241231
  Transmission Date: 20250114
  Serious: Yes (Life-Threatening, Hospitalization, Other)
  Sender: PFIZER
  Company Number: MX-MLMSERVICE-20241213-PI300311-00232-4

PATIENT
  Age: 39 Year
  Sex: Female
  Weight: 45 kg

DRUGS (8)
  1. METHYLPREDNISOLONE SODIUM SUCCINATE [Suspect]
     Active Substance: METHYLPREDNISOLONE SODIUM SUCCINATE
     Indication: Immunosuppressant drug therapy
     Dosage: 1 G (INDUCTION REGIMEN)
     Dates: start: 2023, end: 2023
  2. METHYLPREDNISOLONE SODIUM SUCCINATE [Suspect]
     Active Substance: METHYLPREDNISOLONE SODIUM SUCCINATE
     Dosage: DAY 1: AMPULE (500 MG/10 ML): 4 ML (STRENGTH: MG/ML)
     Route: 042
     Dates: start: 2023, end: 2023
  3. METHYLPREDNISOLONE SODIUM SUCCINATE [Suspect]
     Active Substance: METHYLPREDNISOLONE SODIUM SUCCINATE
     Dosage: DAY 2: AMPULE (500 MG/10 ML): 3.2 ML
     Route: 042
     Dates: start: 2023, end: 2023
  4. METHYLPREDNISOLONE SODIUM SUCCINATE [Suspect]
     Active Substance: METHYLPREDNISOLONE SODIUM SUCCINATE
     Dosage: DAY 3: AMPULE (500 MG/10 ML): 2.4 ML
     Route: 042
     Dates: start: 2023, end: 2023
  5. METHYLPREDNISOLONE SODIUM SUCCINATE [Suspect]
     Active Substance: METHYLPREDNISOLONE SODIUM SUCCINATE
     Dosage: DAY 4: AMPULE (500 MG/10 ML): 1.6 ML
     Route: 042
     Dates: start: 2023, end: 2023
  6. METHYLPREDNISOLONE SODIUM SUCCINATE [Suspect]
     Active Substance: METHYLPREDNISOLONE SODIUM SUCCINATE
     Dosage: DAY 5: AMPULE (500 MG/10 ML): 0.8 ML
     Route: 042
     Dates: start: 2023, end: 2023
  7. MYCOPHENOLATE MOFETIL [Suspect]
     Active Substance: MYCOPHENOLATE MOFETIL
     Indication: Immunosuppressant drug therapy
     Dosage: 500 MG, 2X/DAY
     Route: 048
     Dates: start: 2023, end: 2023
  8. TACROLIMUS [Suspect]
     Active Substance: TACROLIMUS
     Indication: Immunosuppressant drug therapy
     Dosage: 1 TABLET IN THE MORNING AND 1 TABLET AT NIGHT (DURING HOSPITALIZATION)
     Route: 048
     Dates: start: 2023

REACTIONS (2)
  - Gastrointestinal mucormycosis [Recovered/Resolved]
  - Intestinal perforation [Recovered/Resolved]

NARRATIVE: CASE EVENT DATE: 20230101
